FAERS Safety Report 4475957-3 (Version None)
Quarter: 2004Q4

REPORT INFORMATION
  Report Type: 
  Country: None (occurrence: None)
  Receive Date: 20041012
  Receipt Date: 20040930
  Transmission Date: 20050328
  Serious: Yes (Hospitalization)
  Sender: FDA-Public Use
  Company Number: TPA2004A01190

PATIENT
  Sex: Female

DRUGS (1)
  1. ACTOS [Suspect]
     Dosage: 1 IN 1  D, PER ORAL; 1 IN 2 D, PER ORAL;
     Route: 048

REACTIONS (2)
  - BLOOD GLUCOSE DECREASED [None]
  - PROCEDURAL COMPLICATION [None]
